FAERS Safety Report 7965408-6 (Version None)
Quarter: 2011Q4

REPORT INFORMATION
  Report Type: 
  Country: None (occurrence: None)
  Receive Date: 20111205
  Receipt Date: 20111123
  Transmission Date: 20120403
  Serious: Yes (Other)
  Sender: FDA-Public Use
  Company Number: 2011MA016949

PATIENT
  Age: 38 Year
  Sex: Female

DRUGS (8)
  1. FLUOXETINE [Suspect]
     Dosage: 20 MG; QD
     Dates: start: 20101018, end: 20110831
  2. TOPAMAX [Suspect]
     Indication: EPILEPSY
     Dosage: 50 MG; BID; PO
     Route: 048
     Dates: start: 20070703
  3. FOLIC ACID [Concomitant]
  4. CLONAZEPAM [Concomitant]
  5. ANTIDEPRESSANTS [Concomitant]
  6. KEPPRA [Concomitant]
  7. EPILIN [Concomitant]
  8. LAMOTRIGINE [Concomitant]

REACTIONS (12)
  - ELECTRIC SHOCK [None]
  - IRRITABLE BOWEL SYNDROME [None]
  - ABDOMINAL PAIN UPPER [None]
  - WEIGHT DECREASED [None]
  - EMOTIONAL POVERTY [None]
  - PALPITATIONS [None]
  - GINGIVAL BLEEDING [None]
  - DIARRHOEA [None]
  - DEPRESSION [None]
  - HALLUCINATION [None]
  - MOOD SWINGS [None]
  - TOOTH LOSS [None]
